FAERS Safety Report 7709306-1 (Version None)
Quarter: 2011Q3

REPORT INFORMATION
  Report Type: 
  Country: None (occurrence: None)
  Receive Date: 20110825
  Receipt Date: 20110531
  Transmission Date: 20111222
  Serious: No
  Sender: FDA-Public Use
  Company Number: US-TYCO HEALTHCARE/MALLINCKRODT-T201101166

PATIENT
  Age: 56 Year
  Sex: Male

DRUGS (1)
  1. FENTANYL-100 [Suspect]
     Indication: MIGRAINE
     Dosage: 75 UG/HR, UNK,
     Route: 062
     Dates: start: 20110525

REACTIONS (2)
  - WITHDRAWAL SYNDROME [None]
  - DRUG INEFFECTIVE [None]
